FAERS Safety Report 21355731 (Version 1)
Quarter: 2022Q3

REPORT INFORMATION
  Report Type: Spontaneous
  Country: US (occurrence: US)
  Receive Date: 20220920
  Receipt Date: 20220920
  Transmission Date: 20221027
  Serious: No
  Sender: FDA-Public Use
  Company Number: US-THERAPEUTICSMD-2022TMD00102

PATIENT
  Age: 29 Year
  Sex: Female
  Weight: 69.388 kg

DRUGS (1)
  1. ANNOVERA [Suspect]
     Active Substance: ETHINYL ESTRADIOL\SEGESTERONE ACETATE
     Indication: Contraception
     Dosage: 1 RING
     Route: 067
     Dates: start: 20220111, end: 20220117

REACTIONS (3)
  - Vulvovaginal mycotic infection [Recovering/Resolving]
  - Vulvovaginal pruritus [Recovering/Resolving]
  - Vaginal discharge [Recovering/Resolving]

NARRATIVE: CASE EVENT DATE: 20220101
